FAERS Safety Report 7449089-6 (Version None)
Quarter: 2011Q2

REPORT INFORMATION
  Report Type: 
  Country: None (occurrence: None)
  Receive Date: 20110502
  Receipt Date: 20101007
  Transmission Date: 20111010
  Serious: Yes (Hospitalization)
  Sender: FDA-Public Use
  Company Number: US-BAYER-201020429NA

PATIENT
  Age: 45 Year
  Sex: Female
  Weight: 75 kg

DRUGS (34)
  1. YASMIN [Suspect]
     Indication: MENSTRUATION IRREGULAR
  2. FUROSEMIDE [Concomitant]
     Dates: start: 20021201
  3. KETOCONAZOLE [Concomitant]
     Dates: start: 20021201
  4. HYDROCODONE BITARTRATE AND ACETAMINOPHEN [Concomitant]
     Dates: start: 20021201
  5. YASMIN [Suspect]
     Indication: OVARIAN CYST
  6. SULFAMETH/TRIMETHROPRIM [Concomitant]
     Dates: start: 20050404
  7. COUMADIN [Concomitant]
     Indication: ILIAC VEIN OCCLUSION
     Dates: start: 20050404
  8. MIRAPEX [Concomitant]
     Indication: RESTLESS LEGS SYNDROME
     Dosage: 12 MG (DAILY DOSE), ,
     Dates: start: 20030101
  9. CLODERM [Concomitant]
     Dates: start: 20021201
  10. CYANOCOBALAMIN [Concomitant]
     Dates: start: 20021201
  11. DIPHENOXYLATE HCL + ATROPINE SULFATE [Concomitant]
     Dates: start: 20021201
  12. DIAZEPAM [Concomitant]
     Dates: start: 20021201
  13. HYDROMET SYRUP [Concomitant]
     Dates: start: 20021201
  14. BIAXIN [Concomitant]
     Dates: start: 20050215
  15. WARFARIN SODIUM [Concomitant]
     Dates: start: 20050421
  16. IBUPROFEN [Concomitant]
  17. PROMETHAZINE W/ CODEINE [Concomitant]
     Dates: start: 20021201
  18. MEDROXYPROGESTERONE [Concomitant]
     Dates: start: 20021201
  19. YAZ [Suspect]
     Indication: PRODUCT USED FOR UNKNOWN INDICATION
     Route: 048
  20. HUMIBID [Concomitant]
     Dates: start: 20021201
  21. NEXIUM [Concomitant]
     Dates: start: 20021201
  22. PRINIVIL [Concomitant]
     Dosage: 10 MG (DAILY DOSE), ,
  23. SULFAMETHOXAZOLE W/TRIMETHOPRIM [Concomitant]
     Dates: start: 20050404
  24. AZOR [Concomitant]
     Dates: start: 20021201
  25. CEPHALEXIN [Concomitant]
     Dates: start: 20021201
  26. METOPROLOL SUCCINATE [Concomitant]
     Indication: HYPERTENSION
     Dates: start: 19860101
  27. HYDROCODONE COMPOUND [Concomitant]
     Dates: start: 20021201
  28. LOMOTIL [Concomitant]
     Dates: start: 20021201
  29. YASMIN [Suspect]
     Indication: CONTRACEPTION
     Route: 048
     Dates: start: 20080307
  30. COUMADIN [Concomitant]
     Indication: DEEP VEIN THROMBOSIS
  31. LISINOPRIL [Concomitant]
     Indication: HYPERTENSION
     Dates: start: 19860101
  32. CARVEDILOL [Concomitant]
     Dates: start: 20021201
  33. METHYLPREDNISOLONE [Concomitant]
     Dates: start: 20021201
  34. COUGH AND COLD PREPARATIONS [Concomitant]
     Dates: start: 20021201

REACTIONS (3)
  - ILIAC VEIN OCCLUSION [None]
  - PELVIC PAIN [None]
  - DEEP VEIN THROMBOSIS [None]
